FAERS Safety Report 6963349-4 (Version None)
Quarter: 2010Q3

REPORT INFORMATION
  Report Type: 
  Country: None (occurrence: None)
  Receive Date: 20100902
  Receipt Date: 20100824
  Transmission Date: 20110219
  Serious: Yes (Hospitalization)
  Sender: FDA-Public Use
  Company Number: A0788327A

PATIENT
  Age: 61 Year
  Sex: Male
  Weight: 147.7 kg

DRUGS (10)
  1. AVANDIA [Suspect]
     Route: 048
     Dates: start: 20000423, end: 20040304
  2. ASPIRIN [Concomitant]
     Dosage: 325MG PER DAY
  3. VITAMIN E [Concomitant]
  4. FERROUS SULFATE [Concomitant]
  5. NITROGLYCERIN [Concomitant]
  6. LOPRESSOR [Concomitant]
  7. CLONIDINE HCL [Concomitant]
  8. SIMVASTATIN [Concomitant]
  9. LASIX [Concomitant]
  10. HUMULIN N [Concomitant]

REACTIONS (6)
  - ANAEMIA [None]
  - CARDIAC FAILURE CONGESTIVE [None]
  - CORONARY ARTERY DISEASE [None]
  - FLUID RETENTION [None]
  - ISCHAEMIC CARDIOMYOPATHY [None]
  - RENAL FAILURE [None]
